FAERS Safety Report 9305641 (Version 2)
Quarter: 2013Q4

REPORT INFORMATION
  Report Type: Spontaneous
  Country: PL (occurrence: PL)
  Receive Date: 20130523
  Receipt Date: 20131021
  Transmission Date: 20140711
  Serious: Yes (Life-Threatening)
  Sender: FDA-Public Use
  Company Number: PL-PFIZER INC-2013156178

PATIENT
  Age: 67 Year
  Sex: Female
  Weight: 54 kg

DRUGS (3)
  1. CARBOPLATIN [Suspect]
     Indication: LUNG NEOPLASM MALIGNANT
     Dosage: 374 MG/24H
     Route: 042
     Dates: start: 20130411, end: 20130411
  2. NAVELBINE ^PIERRE FABRE^ [Suspect]
     Indication: LUNG NEOPLASM MALIGNANT
     Dosage: 45 MG/24H DOSE
     Route: 042
     Dates: start: 20130411, end: 20130411
  3. NAVELBINE ^PIERRE FABRE^ [Suspect]
     Dosage: 45 MG, UNK
     Route: 042
     Dates: start: 20130418, end: 20130418

REACTIONS (2)
  - Asthenia [Unknown]
  - Decreased appetite [Unknown]
